FAERS Safety Report 18142791 (Version 2)
Quarter: 2020Q3

REPORT INFORMATION
  Report Type: Report from Study
  Country: None (occurrence: US)
  Receive Date: 20200813
  Receipt Date: 20200827
  Transmission Date: 20201103
  Serious: Yes (Hospitalization)
  Sender: FDA-Public Use
  Company Number: US-ABBVIE-20K-163-3518869-00

PATIENT
  Sex: Male

DRUGS (1)
  1. HUMIRA [Suspect]
     Active Substance: ADALIMUMAB
     Indication: CROHN^S DISEASE
     Route: 058
     Dates: start: 20200619

REACTIONS (8)
  - Gastrointestinal inflammation [Unknown]
  - Gastrointestinal oedema [Unknown]
  - Inflammation [Unknown]
  - Asthenia [Recovered/Resolved]
  - Weight decreased [Unknown]
  - Loss of personal independence in daily activities [Recovering/Resolving]
  - Abdominal pain upper [Unknown]
  - Decreased appetite [Recovered/Resolved]

NARRATIVE: CASE EVENT DATE: 2020
